FAERS Safety Report 7338090-9 (Version None)
Quarter: 2011Q1

REPORT INFORMATION
  Report Type: 
  Country: None (occurrence: None)
  Receive Date: 20110308
  Receipt Date: 20110223
  Transmission Date: 20110831
  Serious: Yes (Other)
  Sender: FDA-Public Use
  Company Number: PHEH2009US03544

PATIENT
  Sex: Female

DRUGS (9)
  1. MULTI-VITAMINS [Concomitant]
  2. FISH OIL [Concomitant]
  3. FOSAMAX [Suspect]
     Dosage: 7.5 MG, UNK
  4. LANSOPRAZOLE [Concomitant]
  5. CALCIUM [Concomitant]
  6. IRON SUPPLEMENTS [Concomitant]
     Dosage: ONCE A WEEK
  7. RECLAST [Suspect]
     Dosage: UNK
     Dates: start: 20090328
  8. VITAMIN D [Concomitant]
  9. NEXIUM [Suspect]

REACTIONS (13)
  - BARRETT'S OESOPHAGUS [None]
  - THROAT IRRITATION [None]
  - WEIGHT INCREASED [None]
  - GASTRIC HAEMORRHAGE [None]
  - GASTRIC ULCER [None]
  - OESOPHAGEAL ULCER HAEMORRHAGE [None]
  - OESOPHAGEAL ULCER [None]
  - ARTHRALGIA [None]
  - CHEST PAIN [None]
  - PAIN [None]
  - HICCUPS [None]
  - BODY HEIGHT DECREASED [None]
  - HEADACHE [None]
